FAERS Safety Report 8482278-0 (Version None)
Quarter: 2012Q3

REPORT INFORMATION
  Report Type: 
  Country: None (occurrence: None)
  Receive Date: 20120702
  Receipt Date: 20120628
  Transmission Date: 20120928
  Serious: Yes (Life-Threatening, Hospitalization)
  Sender: FDA-Public Use
  Company Number: PHHY2011BR68260

PATIENT
  Sex: Male

DRUGS (4)
  1. SOMALGIN CARDIO [Concomitant]
     Indication: ANTIPLATELET THERAPY
     Dosage: 100 MG, DAILY
  2. ROSUCOR [Concomitant]
     Indication: CARDIAC DISORDER
     Dosage: 10 MG, DAILY
  3. DIOVAN HCT [Suspect]
     Indication: HYPERTENSION
     Dosage: 1 DF, DAILY (VALSARTAN 80 MG/ HYDROCHLOROTHIAZIDE 12.5 MG)
     Route: 048
  4. CLOPIDOGREL [Concomitant]
     Indication: ANTIPLATELET THERAPY
     Dosage: 75 MG, DAILY

REACTIONS (5)
  - COMA [None]
  - EMOTIONAL DISORDER [None]
  - HYPOTENSION [None]
  - CEREBROVASCULAR ACCIDENT [None]
  - BLOOD PRESSURE INADEQUATELY CONTROLLED [None]
